FAERS Safety Report 7229963-6 (Version None)
Quarter: 2011Q1

REPORT INFORMATION
  Report Type: 
  Country: None (occurrence: None)
  Receive Date: 20110117
  Receipt Date: 20110112
  Transmission Date: 20110831
  Serious: Yes (Other)
  Sender: FDA-Public Use
  Company Number: US-ELI_LILLY_AND_COMPANY-US201101002862

PATIENT
  Sex: Female

DRUGS (2)
  1. LANTUS [Concomitant]
  2. HUMALOG [Suspect]
     Indication: DIABETES MELLITUS
     Dosage: 15 U, 3/D
     Route: 065
     Dates: start: 20100101

REACTIONS (1)
  - BLINDNESS [None]
